FAERS Safety Report 5525252-6 (Version None)
Quarter: 2007Q4

REPORT INFORMATION
  Report Type: 
  Country: None (occurrence: None)
  Receive Date: 20071120
  Receipt Date: 20071114
  Transmission Date: 20080405
  Serious: Yes (Hospitalization)
  Sender: FDA-Public Use
  Company Number: 163-21880-07081199

PATIENT
  Age: 60 Year
  Sex: Female

DRUGS (4)
  1. REVLIMID [Suspect]
     Indication: MULTIPLE MYELOMA
     Dosage: 5 MG, DAILY X21 DAYS, ORAL
     Route: 048
     Dates: start: 20070501, end: 20070701
  2. ASPIRIN [Concomitant]
  3. ERYTHROPOETIN (EPOETIN ALFA) [Concomitant]
  4. SODIUM PICOSULFATE (SODIUM PICOSULFATE) [Concomitant]

REACTIONS (1)
  - CALCIPHYLAXIS [None]
